FAERS Safety Report 12009413 (Version 1)
Quarter: 2016Q1

REPORT INFORMATION
  Report Type: Spontaneous
  Country: US (occurrence: None)
  Receive Date: 20160203
  Receipt Date: 20160203
  Transmission Date: 20160526
  Serious: No
  Sender: FDA-Public Use
  Company Number: None

PATIENT
  Age: 45 Year
  Sex: Male

DRUGS (1)
  1. EXJADE [Suspect]
     Active Substance: DEFERASIROX
     Indication: CHELATION THERAPY
     Dosage: 1 TABLET DISSOLVED IN WATER OR JUICE ONCE DAILY PO
     Route: 048
     Dates: start: 201501

REACTIONS (2)
  - Abdominal discomfort [None]
  - Alopecia [None]

NARRATIVE: CASE EVENT DATE: 201601
